FAERS Safety Report 25969287 (Version 2)
Quarter: 2025Q4

REPORT INFORMATION
  Report Type: Report from Study
  Country: GB (occurrence: GB)
  Receive Date: 20251028
  Receipt Date: 20251103
  Transmission Date: 20260118
  Serious: Yes (Other)
  Sender: SAMSUNG BIOEPIS
  Company Number: GB-SAMSUNG BIOEPIS-SB-2025-35694

PATIENT
  Age: 55 Year
  Sex: Female

DRUGS (2)
  1. ETANERCEPT [Suspect]
     Active Substance: ETANERCEPT
     Indication: Rheumatoid arthritis
     Route: 058
     Dates: start: 20241022
  2. ETANERCEPT [Suspect]
     Active Substance: ETANERCEPT
     Dosage: RESTARTED THERAPY;
     Route: 058
     Dates: start: 20251021

REACTIONS (1)
  - Bladder cancer [Not Recovered/Not Resolved]
